FAERS Safety Report 10087255 (Version 3)
Quarter: 2014Q2

REPORT INFORMATION
  Report Type: Spontaneous
  Country: US (occurrence: US)
  Receive Date: 20140418
  Receipt Date: 20140529
  Transmission Date: 20141212
  Serious: No
  Sender: FDA-Public Use
  Company Number: US-GILEAD-2014-0099443

PATIENT
  Sex: Female

DRUGS (3)
  1. SOVALDI [Suspect]
     Indication: PRODUCT USED FOR UNKNOWN INDICATION
     Dosage: UNK
     Route: 065
     Dates: start: 2014, end: 2014
  2. SOVALDI [Suspect]
     Dosage: 400 MG, QD
     Dates: start: 20140411
  3. RIBAVIRIN [Suspect]
     Indication: PRODUCT USED FOR UNKNOWN INDICATION
     Dosage: 200 MG, TID
     Route: 065

REACTIONS (2)
  - Drug dose omission [Unknown]
  - Liver function test abnormal [Unknown]
